FAERS Safety Report 9482483 (Version 1)
Quarter: 2013Q3

REPORT INFORMATION
  Report Type: Spontaneous
  Country: BR (occurrence: None)
  Receive Date: 20130822
  Receipt Date: 20130822
  Transmission Date: 20140515
  Serious: Yes (Other)
  Sender: FDA-Public Use
  Company Number: 2013-363

PATIENT
  Age: 23 Year
  Sex: Male

DRUGS (4)
  1. CLOZAPINE [Suspect]
     Route: 048
  2. CLOMIPRAMINE (CLOMIPRAMINE HYDROCHLORIDE) [Concomitant]
  3. SERTRALINE (SERTRALINE HYDROCHLORIDE) [Concomitant]
  4. LAMOTRIGINE A (LAMOTRIGINE) [Concomitant]

REACTIONS (3)
  - Dengue fever [None]
  - Schizophrenia [None]
  - Catatonia [None]
